FAERS Safety Report 9454653 (Version 2)
Quarter: 2013Q3

REPORT INFORMATION
  Report Type: Spontaneous
  Country: US (occurrence: US)
  Receive Date: 20130812
  Receipt Date: 20130909
  Transmission Date: 20140515
  Serious: Yes (Hospitalization)
  Sender: FDA-Public Use
  Company Number: US-INCYTE CORPORATION-2013IN001773

PATIENT
  Age: 72 Year
  Sex: Female

DRUGS (7)
  1. JAKAFI [Suspect]
     Indication: SPLENOMEGALY
     Dosage: 10 MG DAILY TUES, THURSSAT, SUN AND 10 MG BID MWF
     Dates: start: 2012
  2. COREG [Concomitant]
     Dosage: 12.5 MG, BID
  3. FLUOXETINE [Concomitant]
     Dosage: 20 MG
  4. BENICAR [Concomitant]
     Dosage: 40 MG, QD
  5. FOLIC ACID [Concomitant]
     Dosage: 1 MG, QD
  6. LEFLUNOMIDE [Concomitant]
     Dosage: 20 MG, QD
  7. HYDROCODONE [Concomitant]
     Dosage: 20 MG, QID

REACTIONS (1)
  - Infection [Unknown]
